FAERS Safety Report 14452860 (Version 1)
Quarter: 2018Q1

REPORT INFORMATION
  Report Type: Spontaneous
  Country: US (occurrence: US)
  Receive Date: 20180129
  Receipt Date: 20180129
  Transmission Date: 20180509
  Serious: No
  Sender: FDA-Public Use
  Company Number: US-TEVA-795165ACC

PATIENT
  Age: 65 Year
  Sex: Female

DRUGS (3)
  1. METOPROLOL SUCCINATE. [Suspect]
     Active Substance: METOPROLOL SUCCINATE
     Dosage: .5 MILLIGRAM DAILY; AT BEDTIME
  2. METOPROLOL SUCCINATE. [Suspect]
     Active Substance: METOPROLOL SUCCINATE
     Indication: TACHYCARDIA
     Dosage: 1 MILLIGRAM DAILY;
     Dates: start: 20170802
  3. RESTORIL [Concomitant]
     Active Substance: TEMAZEPAM

REACTIONS (9)
  - Heart rate irregular [Unknown]
  - Product use in unapproved indication [Unknown]
  - Hypotension [Unknown]
  - Heart rate decreased [Unknown]
  - Loss of personal independence in daily activities [Unknown]
  - Blood pressure fluctuation [Unknown]
  - Fatigue [Unknown]
  - Palpitations [Unknown]
  - Asthenia [Unknown]

NARRATIVE: CASE EVENT DATE: 20170802
